FAERS Safety Report 10191868 (Version 1)
Quarter: 2014Q2

REPORT INFORMATION
  Report Type: Spontaneous
  Country: US (occurrence: US)
  Receive Date: 20140523
  Receipt Date: 20140523
  Transmission Date: 20141212
  Serious: Yes (Other)
  Sender: FDA-Public Use
  Company Number: US-GLAXOSMITHKLINE-A1073141A

PATIENT
  Age: 60 Year
  Sex: Male

DRUGS (6)
  1. AVANDIA [Suspect]
     Indication: TYPE 2 DIABETES MELLITUS
     Route: 048
  2. WELLBUTRIN [Concomitant]
  3. METFORMIN [Concomitant]
  4. BENICAR [Concomitant]
  5. LOPID [Concomitant]
  6. LASIX [Concomitant]

REACTIONS (3)
  - Terminal state [Recovered/Resolved]
  - Arthropathy [Recovered/Resolved]
  - Chest pain [Recovered/Resolved]
